FAERS Safety Report 14956460 (Version 1)
Quarter: 2018Q2

REPORT INFORMATION
  Report Type: Spontaneous
  Country: US (occurrence: US)
  Receive Date: 20180531
  Receipt Date: 20180531
  Transmission Date: 20180711
  Serious: No
  Sender: FDA-Public Use
  Company Number: US-PFIZER INC-2018220431

PATIENT
  Age: 49 Year
  Sex: Female
  Weight: 54.42 kg

DRUGS (4)
  1. EUCRISA [Suspect]
     Active Substance: CRISABOROLE
     Dosage: UNK, 2X/DAY (APPLY THIN LAYER TOPICALLY, 2 TIMES DAILY)
     Route: 061
     Dates: start: 20180525, end: 20180529
  2. NAPROXEN. [Concomitant]
     Active Substance: NAPROXEN
     Indication: INFLAMMATION
     Dosage: 200 MG, 1X/DAY(ONE 200 MG TABLET, AT NIGHT)
  3. EUCRISA [Suspect]
     Active Substance: CRISABOROLE
     Indication: DERMATITIS ATOPIC
     Dosage: UNK
     Dates: start: 201711
  4. CELEXA [Concomitant]
     Active Substance: CITALOPRAM HYDROBROMIDE
     Indication: ANXIETY
     Dosage: 20 MG, 1X/DAY

REACTIONS (5)
  - Application site pruritus [Unknown]
  - Drug ineffective [Unknown]
  - Application site erythema [Unknown]
  - Application site exfoliation [Unknown]
  - Application site warmth [Unknown]

NARRATIVE: CASE EVENT DATE: 2017
